FAERS Safety Report 8622312-8 (Version None)
Quarter: 2012Q3

REPORT INFORMATION
  Report Type: 
  Country: None (occurrence: None)
  Receive Date: 20120827
  Receipt Date: 20120815
  Transmission Date: 20120928
  Serious: Yes (Hospitalization)
  Sender: FDA-Public Use
  Company Number: US-BIOGENIDEC-2010BI039891

PATIENT
  Age: 41 Year
  Sex: Female

DRUGS (4)
  1. AVONEX [Suspect]
     Route: 030
     Dates: start: 20120810
  2. AVONEX [Suspect]
     Indication: MULTIPLE SCLEROSIS
     Route: 030
     Dates: start: 19990701, end: 20000701
  3. AVONEX [Suspect]
     Route: 030
     Dates: start: 20111104, end: 20111230
  4. AVONEX [Suspect]
     Route: 030
     Dates: start: 20101024, end: 20110201

REACTIONS (2)
  - PAIN [None]
  - ANXIETY [None]
